FAERS Safety Report 10100890 (Version 4)
Quarter: 2014Q2

REPORT INFORMATION
  Report Type: Spontaneous
  Country: BR (occurrence: BR)
  Receive Date: 20140423
  Receipt Date: 20140630
  Transmission Date: 20141212
  Serious: Yes (Death, Hospitalization, Other)
  Sender: FDA-Public Use
  Company Number: BR-ELI_LILLY_AND_COMPANY-BR201404003210

PATIENT
  Age: 87 Year
  Sex: Female
  Weight: 46 kg

DRUGS (6)
  1. FORTEO [Suspect]
     Indication: OSTEOPOROSIS
     Dosage: UNK, UNKNOWN
     Route: 058
     Dates: start: 20111111, end: 201311
  2. FORTEO [Suspect]
     Dosage: UNK
     Route: 058
     Dates: start: 201402, end: 20140520
  3. BEROTEC [Suspect]
     Indication: FATIGUE
     Dosage: 10 GTT, UNKNOWN
     Route: 055
  4. BEROTEC [Suspect]
     Indication: INFLUENZA
  5. BEROTEC [Suspect]
     Indication: NASOPHARYNGITIS
  6. VITAMIN D                          /00107901/ [Concomitant]
     Indication: OSTEOPOROSIS
     Dosage: UNK, BID
     Route: 065

REACTIONS (26)
  - Respiratory arrest [Fatal]
  - Cardiac arrest [Fatal]
  - Cardiomegaly [Not Recovered/Not Resolved]
  - Hypertension [Recovered/Resolved]
  - Dementia Alzheimer^s type [Unknown]
  - Bone pain [Recovered/Resolved]
  - Arthralgia [Recovered/Resolved]
  - Bone density decreased [Recovered/Resolved]
  - Fatigue [Not Recovered/Not Resolved]
  - Dyspnoea [Recovered/Resolved]
  - Cyanosis [Recovered/Resolved]
  - Abdominal pain upper [Recovered/Resolved]
  - Liver disorder [Recovered/Resolved]
  - Immunodeficiency [Recovered/Resolved]
  - Blood disorder [Recovered/Resolved]
  - Blood glucose increased [Recovered/Resolved]
  - Headache [Unknown]
  - Malaise [Not Recovered/Not Resolved]
  - Ulcer [Recovered/Resolved]
  - Asthenia [Unknown]
  - Feeling cold [Recovered/Resolved]
  - Nausea [Not Recovered/Not Resolved]
  - Incorrect drug administration duration [Unknown]
  - Cough [Not Recovered/Not Resolved]
  - Pain [Unknown]
  - Regurgitation [Unknown]
